FAERS Safety Report 10421034 (Version 2)
Quarter: 2014Q3

REPORT INFORMATION
  Report Type: Spontaneous
  Country: US (occurrence: None)
  Receive Date: 20140827
  Receipt Date: 20140915
  Transmission Date: 20150326
  Serious: Yes (Other)
  Sender: FDA-Public Use
  Company Number: 14US007947

PATIENT
  Age: 78 Year
  Sex: Male
  Weight: 93 kg

DRUGS (8)
  1. DIURETICS [Concomitant]
     Active Substance: UNSPECIFIED INGREDIENT
  2. PLAVIX [Concomitant]
     Active Substance: CLOPIDOGREL BISULFATE
  3. QVAR (BECLOMETASONE DIPROPIONATE) [Concomitant]
  4. PROAIR HFA [Concomitant]
     Active Substance: ALBUTEROL SULFATE
  5. MONTELUKAST SODIUM (MONTELUKAST SODIUM) [Concomitant]
     Active Substance: MONTELUKAST SODIUM
  6. LORATADINE/PSEUDOEPHEDRINE SULFATE [Suspect]
     Active Substance: LORATADINE\PSEUDOEPHEDRINE SULFATE
     Indication: SEASONAL ALLERGY
     Dosage: 1 TABLET QD, ORAL
     Route: 048
     Dates: start: 20140806, end: 20140807
  7. ACE INHIBITORS [Concomitant]
     Active Substance: UNSPECIFIED INGREDIENT
  8. ATORVASTATIN (ATORVASTATIN) [Concomitant]
     Active Substance: ATORVASTATIN

REACTIONS (5)
  - Dehydration [None]
  - Malaise [None]
  - Hypertrophy [None]
  - Urinary retention [None]
  - Constipation [None]

NARRATIVE: CASE EVENT DATE: 20140807
